FAERS Safety Report 12996580 (Version 1)
Quarter: 2016Q4

REPORT INFORMATION
  Report Type: Spontaneous
  Country: HK (occurrence: HK)
  Receive Date: 20161204
  Receipt Date: 20161204
  Transmission Date: 20170207
  Serious: Yes (Hospitalization, Other)
  Sender: FDA-Public Use
  Company Number: HK-GLAXOSMITHKLINE-HK2016GSK177302

PATIENT
  Age: 64 Year
  Sex: Male

DRUGS (3)
  1. BETAMETHASONE DIPROPIONATE. [Suspect]
     Active Substance: BETAMETHASONE DIPROPIONATE
     Indication: PITYRIASIS RUBRA PILARIS
     Dosage: UNK, BID
     Route: 061
  2. ACITRETIN. [Suspect]
     Active Substance: ACITRETIN
     Indication: PITYRIASIS RUBRA PILARIS
     Dosage: UNK
  3. METHOTREXATE. [Suspect]
     Active Substance: METHOTREXATE
     Indication: PITYRIASIS RUBRA PILARIS

REACTIONS (3)
  - Pityriasis rubra pilaris [Recovered/Resolved]
  - Polymyalgia rheumatica [Recovered/Resolved]
  - Depression [Recovered/Resolved]
